FAERS Safety Report 8245975 (Version 3)
Quarter: 2013Q2

REPORT INFORMATION
  Report Type: Spontaneous
  Country: PL (occurrence: PL)
  Receive Date: 20111116
  Receipt Date: 20130524
  Transmission Date: 20140414
  Serious: Yes (Hospitalization, Other)
  Sender: FDA-Public Use
  Company Number: PL-ROCHE-1010199

PATIENT
  Age: 37 Year
  Sex: Male

DRUGS (10)
  1. RITUXIMAB [Suspect]
     Indication: DIFFUSE LARGE B-CELL LYMPHOMA
     Dosage: FORM: INFUSIONTHE PATIENT RECEIVED FULL COURSE OF RITUXIMAB (6 INFUSIONS)
     Route: 042
     Dates: start: 20071018
  2. RITUXIMAB [Suspect]
     Dosage: DRUG RESTARTED
     Route: 042
     Dates: start: 200801
  3. ENDOXAN [Suspect]
     Indication: DIFFUSE LARGE B-CELL LYMPHOMA
     Route: 042
     Dates: start: 20071018
  4. ENDOXAN [Suspect]
     Dosage: DRUG RESTARTED
     Route: 042
     Dates: start: 200801
  5. DOXORUBICIN [Suspect]
     Indication: DIFFUSE LARGE B-CELL LYMPHOMA
     Dosage: DRUG NAME: DOXORUBICYNA
     Route: 042
     Dates: start: 20071018
  6. DOXORUBICIN [Suspect]
     Dosage: DRUG RESTARTED
     Route: 042
     Dates: start: 200801
  7. VINCRISTINE [Suspect]
     Indication: DIFFUSE LARGE B-CELL LYMPHOMA
     Route: 042
     Dates: start: 20071018
  8. VINCRISTINE [Suspect]
     Dosage: DRUG RESTARTED
     Route: 042
     Dates: start: 200801
  9. PREDNISONE [Suspect]
     Indication: DIFFUSE LARGE B-CELL LYMPHOMA
     Route: 048
     Dates: start: 20071018
  10. PREDNISONE [Suspect]
     Dosage: DRUG RESTARTED
     Route: 048
     Dates: start: 200801

REACTIONS (7)
  - Abdominal pain [Unknown]
  - Urinary retention [Unknown]
  - Peritoneal disorder [Unknown]
  - Ileal perforation [Recovering/Resolving]
  - Abscess [Recovering/Resolving]
  - Adhesion [Recovering/Resolving]
  - Volvulus of small bowel [Recovering/Resolving]
